FAERS Safety Report 26214999 (Version 1)
Quarter: 2025Q4

REPORT INFORMATION
  Report Type: Spontaneous
  Country: US (occurrence: None)
  Receive Date: 20251230
  Receipt Date: 20251230
  Transmission Date: 20260117
  Serious: Yes (Death, Hospitalization)
  Sender: ENDO
  Company Number: US-ENDO USA, INC.-2025-002490

PATIENT
  Age: 83 Year
  Sex: Male

DRUGS (2)
  1. COLCHICINE [Suspect]
     Active Substance: COLCHICINE
     Indication: Pericardial effusion
     Dosage: UNK UNKNOWN, UNKNOWN
     Route: 065
  2. METFORMIN [Suspect]
     Active Substance: METFORMIN HYDROCHLORIDE
     Indication: Diabetes mellitus
     Dosage: UNK UNKNOWN, UNKNOWN
     Route: 065

REACTIONS (9)
  - Multiple organ dysfunction syndrome [Fatal]
  - Drug-disease interaction [Fatal]
  - Drug interaction [Fatal]
  - Lactic acidosis [Fatal]
  - Acute kidney injury [Fatal]
  - Toxicity to various agents [Fatal]
  - Mental status changes [Unknown]
  - Hypotension [Unknown]
  - Off label use [Unknown]
